FAERS Safety Report 7354382-1 (Version None)
Quarter: 2011Q1

REPORT INFORMATION
  Report Type: 
  Country: None (occurrence: None)
  Receive Date: 20110316
  Receipt Date: 20110304
  Transmission Date: 20110831
  Serious: Yes (Other)
  Sender: FDA-Public Use
  Company Number: US-JNJFOC-20110303619

PATIENT
  Sex: Female

DRUGS (1)
  1. ORTHO EVRA [Suspect]
     Indication: CONTRACEPTION
     Route: 062

REACTIONS (10)
  - MUSCULAR WEAKNESS [None]
  - DIZZINESS [None]
  - FATIGUE [None]
  - VISION BLURRED [None]
  - DYSPNOEA [None]
  - ABDOMINAL TENDERNESS [None]
  - PAIN [None]
  - HEADACHE [None]
  - INSOMNIA [None]
  - CHEST PAIN [None]
